FAERS Safety Report 23386100 (Version 2)
Quarter: 2024Q4

REPORT INFORMATION
  Report Type: Report from Study
  Country: BR (occurrence: BR)
  Receive Date: 20240110
  Receipt Date: 20241105
  Transmission Date: 20250115
  Serious: Yes (Other)
  Sender: CELLTRION
  Company Number: BR-CELLTRION INC.-2024BR000264

PATIENT

DRUGS (1)
  1. RITUXIMAB-ABBS [Suspect]
     Active Substance: RITUXIMAB-ABBS
     Indication: Rheumatoid arthritis
     Dosage: UNK
     Route: 042
     Dates: start: 20231128

REACTIONS (12)
  - Mental impairment [Unknown]
  - Eye discharge [Not Recovered/Not Resolved]
  - Weight decreased [Unknown]
  - Vision blurred [Not Recovered/Not Resolved]
  - Hypersensitivity [Unknown]
  - Dizziness [Not Recovered/Not Resolved]
  - Labyrinthitis [Not Recovered/Not Resolved]
  - Pain [Unknown]
  - Headache [Unknown]
  - Asthenia [Unknown]
  - Confusional state [Unknown]
  - Intentional dose omission [Unknown]
